FAERS Safety Report 16972225 (Version 2)
Quarter: 2019Q4

REPORT INFORMATION
  Report Type: Spontaneous
  Country: FR (occurrence: US)
  Receive Date: 20191029
  Receipt Date: 20191118
  Transmission Date: 20200122
  Serious: No
  Sender: FDA-Public Use
  Company Number: US-ETHYPHARM-201902204

PATIENT
  Sex: Female

DRUGS (1)
  1. BUPRENORPHINE. [Suspect]
     Active Substance: BUPRENORPHINE
     Indication: PRODUCT USED FOR UNKNOWN INDICATION
     Dosage: EXP. DATE 03/2021?NDC: 50383093093
     Route: 060

REACTIONS (2)
  - Drug screen positive [Unknown]
  - Exposure during pregnancy [Unknown]
